FAERS Safety Report 11648835 (Version 1)
Quarter: 2015Q4

REPORT INFORMATION
  Report Type: Report from Study
  Country: US (occurrence: US)
  Receive Date: 20151021
  Receipt Date: 20151021
  Transmission Date: 20160304
  Serious: Yes (Other)
  Sender: FDA-Public Use
  Company Number: US-SANOFI-AVENTIS-2013SA079018

PATIENT
  Age: 49 Year
  Sex: Female

DRUGS (3)
  1. AUBAGIO [Suspect]
     Active Substance: TERIFLUNOMIDE
     Indication: MULTIPLE SCLEROSIS
     Route: 048
  2. AUBAGIO [Suspect]
     Active Substance: TERIFLUNOMIDE
     Indication: MULTIPLE SCLEROSIS
     Route: 048
  3. AUBAGIO [Suspect]
     Active Substance: TERIFLUNOMIDE
     Indication: MULTIPLE SCLEROSIS
     Route: 048
     Dates: start: 20130710

REACTIONS (27)
  - Tension headache [Not Recovered/Not Resolved]
  - Insomnia [Unknown]
  - Chest discomfort [Not Recovered/Not Resolved]
  - Fatigue [Unknown]
  - Psychiatric symptom [Not Recovered/Not Resolved]
  - Fall [Unknown]
  - Drug dose omission [Unknown]
  - Pain [Unknown]
  - Muscle spasms [Not Recovered/Not Resolved]
  - Ligament sprain [Unknown]
  - Urinary incontinence [Not Recovered/Not Resolved]
  - Visual impairment [Unknown]
  - Hypoaesthesia [Not Recovered/Not Resolved]
  - Inappropriate schedule of drug administration [Unknown]
  - Multiple sclerosis [Not Recovered/Not Resolved]
  - Dysphagia [Unknown]
  - Head discomfort [Not Recovered/Not Resolved]
  - Muscle tightness [Not Recovered/Not Resolved]
  - Communication disorder [Unknown]
  - Alopecia [Not Recovered/Not Resolved]
  - Nausea [Not Recovered/Not Resolved]
  - Memory impairment [Not Recovered/Not Resolved]
  - Urinary tract infection [Recovering/Resolving]
  - Paraesthesia [Not Recovered/Not Resolved]
  - Joint swelling [Recovered/Resolved]
  - Muscle strain [Unknown]
  - Headache [Not Recovered/Not Resolved]

NARRATIVE: CASE EVENT DATE: 20130827
